FAERS Safety Report 4965301-7 (Version None)
Quarter: 2006Q2

REPORT INFORMATION
  Report Type: 
  Country: None (occurrence: None)
  Receive Date: 20060406
  Receipt Date: 20051004
  Transmission Date: 20061013
  Serious: Yes (Hospitalization)
  Sender: FDA-Public Use
  Company Number: US-MERCK-0510USA03482

PATIENT
  Age: 70 Year
  Sex: Male
  Weight: 87 kg

DRUGS (2)
  1. VIOXX [Suspect]
     Indication: MONARTHRITIS
     Route: 048
     Dates: start: 20020101, end: 20030101
  2. ALEVE [Concomitant]
     Route: 065

REACTIONS (6)
  - CEREBRAL THROMBOSIS [None]
  - CEREBROVASCULAR DISORDER [None]
  - DYSPNOEA [None]
  - HEADACHE [None]
  - PROSTATE CANCER [None]
  - THROMBOSIS [None]
